FAERS Safety Report 7943304-8 (Version None)
Quarter: 2011Q4

REPORT INFORMATION
  Report Type: 
  Country: None (occurrence: None)
  Receive Date: 20111128
  Receipt Date: 20111125
  Transmission Date: 20120403
  Serious: Yes (Death, Hospitalization)
  Sender: FDA-Public Use
  Company Number: PHHY2010TW11075

PATIENT
  Sex: Male

DRUGS (6)
  1. GLEEVEC [Suspect]
     Dosage: 4 DF, UNK
  2. TASIGNA [Suspect]
     Dosage: 4 DF IN THE EVENING
     Dates: end: 20100120
  3. GLEEVEC [Suspect]
     Dosage: 4 DF, UNK
  4. GLEEVEC [Suspect]
     Dosage: 600 MG, UNK
     Dates: start: 20100211
  5. GLEEVEC [Suspect]
     Indication: GASTROINTESTINAL STROMAL TUMOUR
     Dosage: 800 MG, UNK
     Route: 048
     Dates: start: 20060509, end: 20100222
  6. GLEEVEC [Suspect]
     Dosage: 8 DF, UNK
     Dates: start: 20100204

REACTIONS (12)
  - NEOPLASM MALIGNANT [None]
  - ABDOMINAL PAIN [None]
  - GASTROINTESTINAL OBSTRUCTION [None]
  - REGURGITATION [None]
  - RASH [None]
  - DRUG INEFFECTIVE [None]
  - ASTHENIA [None]
  - WEIGHT DECREASED [None]
  - NAUSEA [None]
  - GASTROINTESTINAL STROMAL TUMOUR [None]
  - ABDOMINAL DISCOMFORT [None]
  - VOMITING [None]
